FAERS Safety Report 10032440 (Version 2)
Quarter: 2014Q1

REPORT INFORMATION
  Report Type: Spontaneous
  Country: IT (occurrence: None)
  Receive Date: 20140320
  Receipt Date: 20140325
  Transmission Date: 20141002
  Serious: Yes (Other)
  Sender: FDA-Public Use
  Company Number: AUR-APL-2014-03107

PATIENT
  Age: 57 Year
  Sex: Male

DRUGS (5)
  1. CEFTRIAXONE (CEFTRIAXONE) [Suspect]
     Indication: PNEUMONITIS
     Dosage: 1 GM, 1 D, INTRAMUSCULAR
     Route: 030
     Dates: start: 20140129, end: 20140205
  2. BRUFEN (IBUPROFEN) [Suspect]
     Indication: HYPERPYREXIA
     Dosage: 400 MG, 1 D, ORAL
     Route: 048
     Dates: start: 20140211, end: 20140220
  3. COUMADIN (WARFARIN SODIUM) [Suspect]
     Indication: CEREBROVASCULAR ACCIDENT PROPHYLAXIS
     Dosage: 40 MG, 1 IN 1WK, ORAL
     Route: 048
     Dates: start: 20080908, end: 20140225
  4. NORVASC (AMLODIPINE BESILATE) [Concomitant]
  5. MODURETIC (MODURETIC) [Concomitant]

REACTIONS (2)
  - International normalised ratio increased [None]
  - Drug interaction [None]
